FAERS Safety Report 19158671 (Version 1)
Quarter: 2021Q2

REPORT INFORMATION
  Report Type: Spontaneous
  Country: US (occurrence: US)
  Receive Date: 20210420
  Receipt Date: 20210420
  Transmission Date: 20210717
  Serious: Yes (Other)
  Sender: FDA-Public Use
  Company Number: US-COOPERSURGICAL, INC.-US-2021CPS000304

PATIENT
  Age: 51 Year
  Sex: Female
  Weight: 59.41 kg

DRUGS (2)
  1. PARAGARD T 380A [Suspect]
     Active Substance: COPPER
     Indication: CONTRACEPTION
     Dosage: UNK
     Route: 015
     Dates: start: 20201026, end: 20210224
  2. PARAGARD T 380A [Suspect]
     Active Substance: COPPER
     Dosage: UNK
     Route: 015
     Dates: start: 20210224

REACTIONS (7)
  - Device dislocation [Recovered/Resolved]
  - Device expulsion [Recovered/Resolved]
  - Uterine cyst [Recovered/Resolved]
  - Complication of device insertion [Recovered/Resolved]
  - Blood pressure increased [Unknown]
  - Uterine leiomyoma [Unknown]
  - Embedded device [Recovered/Resolved]

NARRATIVE: CASE EVENT DATE: 20201026
